FAERS Safety Report 9752153 (Version 1)
Quarter: 2013Q4

REPORT INFORMATION
  Report Type: Spontaneous
  Country: US (occurrence: None)
  Receive Date: 20131211
  Receipt Date: 20131211
  Transmission Date: 20140711
  Serious: Yes (Hospitalization)
  Sender: FDA-Public Use
  Company Number: None

PATIENT
  Age: 14 Year
  Sex: Male
  Weight: 31 kg

DRUGS (11)
  1. ASPIRIN [Suspect]
     Indication: ANTIPLATELET THERAPY
     Route: 048
     Dates: start: 20131206, end: 20131206
  2. ACETAMINOPHEN\HYDROCODONE [Concomitant]
  3. FUROSEMIDE [Concomitant]
  4. ASPIRIN [Concomitant]
  5. DIPHENHYDRAMINE [Concomitant]
  6. POLYETHYLENE GLYCOL [Concomitant]
  7. MORPHINE [Concomitant]
  8. FUROSEMIDE [Concomitant]
  9. DOCUSATE [Concomitant]
  10. POLYETHYLENE GLYCOL [Concomitant]
  11. ACETAMINOPHEN\HYDROCODONE [Concomitant]

REACTIONS (1)
  - Eye swelling [None]
